FAERS Safety Report 15438509 (Version 2)
Quarter: 2020Q2

REPORT INFORMATION
  Report Type: Report from Study
  Country: GB (occurrence: GB)
  Receive Date: 20180928
  Receipt Date: 20200629
  Transmission Date: 20200713
  Serious: Yes (Hospitalization, Other)
  Sender: FDA-Public Use
  Company Number: GB-ROCHE-1916003

PATIENT
  Sex: Female

DRUGS (1)
  1. ROACTEMRA [Suspect]
     Active Substance: TOCILIZUMAB
     Indication: RHEUMATOID ARTHRITIS
     Route: 058
     Dates: start: 20141218

REACTIONS (4)
  - Lower respiratory tract infection [Unknown]
  - Localised infection [Unknown]
  - Cellulitis [Unknown]
  - Skin ulcer [Unknown]
